FAERS Safety Report 10414134 (Version 2)
Quarter: 2014Q3

REPORT INFORMATION
  Report Type: Spontaneous
  Country: US (occurrence: US)
  Receive Date: 20140827
  Receipt Date: 20140827
  Transmission Date: 20150326
  Serious: No
  Sender: FDA-Public Use
  Company Number: US-ASTRAZENECA-2014SE03094

PATIENT
  Age: 64 Year
  Sex: Male
  Weight: 99.8 kg

DRUGS (6)
  1. OXYGEN. [Concomitant]
     Active Substance: OXYGEN
     Indication: LUNG DISORDER
  2. SYMBICORT [Suspect]
     Active Substance: BUDESONIDE\FORMOTEROL FUMARATE DIHYDRATE
     Indication: AUTOIMMUNE DISORDER
     Dosage: 160/4.5, 2 PUFFS BID
     Route: 055
  3. UNSPECIFIED STATIN MEDICATION [Concomitant]
  4. SYMBICORT [Suspect]
     Active Substance: BUDESONIDE\FORMOTEROL FUMARATE DIHYDRATE
     Indication: AUTOIMMUNE DISORDER
     Dosage: 160/4.5, ONE PUFF BID
     Route: 055
     Dates: end: 20131223
  5. VYTORIN [Concomitant]
     Active Substance: EZETIMIBE\SIMVASTATIN
  6. INSULIN [Concomitant]
     Active Substance: INSULIN NOS
     Indication: DIABETES MELLITUS

REACTIONS (5)
  - Off label use [Recovered/Resolved]
  - Off label use [Unknown]
  - Incorrect product storage [Unknown]
  - Lung disorder [Unknown]
  - Dyspnoea [Unknown]

NARRATIVE: CASE EVENT DATE: 20131223
